FAERS Safety Report 9913123 (Version 2)
Quarter: 2014Q1

REPORT INFORMATION
  Report Type: Report from Study
  Country: US (occurrence: US)
  Receive Date: 20140220
  Receipt Date: 20140220
  Transmission Date: 20141002
  Serious: Yes (Other)
  Sender: FDA-Public Use
  Company Number: US-ROCHE-1288909

PATIENT
  Sex: Male

DRUGS (11)
  1. LUCENTIS [Suspect]
     Indication: RETINAL VEIN OCCLUSION
     Dosage: MOST RECENT DOSE ON 04/SEP/2013
     Route: 065
     Dates: start: 20130329
  2. LUCENTIS [Suspect]
     Indication: CYSTOID MACULAR OEDEMA
  3. LUCENTIS [Suspect]
     Indication: DIABETIC RETINAL OEDEMA
  4. AVASTIN [Suspect]
     Indication: RETINAL VEIN OCCLUSION
     Dosage: MOST RECENT DOSE ON 22/FEB/2013
     Route: 065
     Dates: start: 20110511
  5. AVASTIN [Suspect]
     Indication: CYSTOID MACULAR OEDEMA
     Route: 065
     Dates: start: 20110503
  6. AVASTIN [Suspect]
     Indication: DIABETIC RETINAL OEDEMA
  7. ATENOLOL [Concomitant]
     Route: 065
  8. METFORMIN HYDROCHLORIDE [Concomitant]
     Route: 065
  9. BENICAR [Concomitant]
     Route: 065
  10. LASIX [Concomitant]
     Route: 065
  11. OZURDEX [Concomitant]
     Route: 065

REACTIONS (6)
  - Eye irritation [Unknown]
  - Vision blurred [Unknown]
  - Cataract cortical [Unknown]
  - Cataract nuclear [Recovering/Resolving]
  - Retinal aneurysm [Unknown]
  - Visual impairment [Unknown]
